FAERS Safety Report 25520333 (Version 1)
Quarter: 2025Q3

REPORT INFORMATION
  Report Type: Spontaneous
  Country: US (occurrence: US)
  Receive Date: 20250704
  Receipt Date: 20250704
  Transmission Date: 20251021
  Serious: No
  Sender: SANOFI AVENTIS
  Company Number: US-SA-2025SA187806

PATIENT
  Sex: Female

DRUGS (26)
  1. DUPIXENT [Suspect]
     Active Substance: DUPILUMAB
     Indication: Chronic obstructive pulmonary disease
     Dosage: 300 MG, QOW
     Route: 058
  2. ABILIFY [Concomitant]
     Active Substance: ARIPIPRAZOLE
  3. ALBUTEROL SULFATE [Concomitant]
     Active Substance: ALBUTEROL SULFATE
  4. CARAFATE [Concomitant]
     Active Substance: SUCRALFATE
  5. COLACE [Concomitant]
     Active Substance: DOCUSATE SODIUM
  6. CYCLOBENZAPRINE [Concomitant]
     Active Substance: CYCLOBENZAPRINE
  7. DULOXETINE HYDROCHLORIDE [Concomitant]
     Active Substance: DULOXETINE HYDROCHLORIDE
  8. ESTRADIOL BENZOATE [Concomitant]
     Active Substance: ESTRADIOL BENZOATE
  9. FERROUS FUMARA [Concomitant]
  10. FOSAMAX [Concomitant]
     Active Substance: ALENDRONATE SODIUM
  11. IBUPROFEN SODIUM [Concomitant]
     Active Substance: IBUPROFEN SODIUM
  12. LASIX [Concomitant]
     Active Substance: FUROSEMIDE
  13. LINZESS [Concomitant]
     Active Substance: LINACLOTIDE
  14. ARIPIPRAZOLE [Concomitant]
     Active Substance: ARIPIPRAZOLE
  15. FLUCONAZOLE [Concomitant]
     Active Substance: FLUCONAZOLE
  16. ISOSORBIDE DINITRATE [Concomitant]
     Active Substance: ISOSORBIDE DINITRATE
  17. METOPROLOL SUCCINATE [Concomitant]
     Active Substance: METOPROLOL SUCCINATE
  18. MIRTAZAPINE [Concomitant]
     Active Substance: MIRTAZAPINE
  19. OMEPRAZOLE [Concomitant]
     Active Substance: OMEPRAZOLE
  20. ONDANSETRON [Concomitant]
     Active Substance: ONDANSETRON
  21. POTASSIUM [Concomitant]
     Active Substance: POTASSIUM
  22. PREDNISONE [Concomitant]
     Active Substance: PREDNISONE
  23. ROFLUMILAST [Concomitant]
     Active Substance: ROFLUMILAST
  24. ROSUVASTATIN [Concomitant]
     Active Substance: ROSUVASTATIN
  25. TRELEGY ELLIPTA [Concomitant]
     Active Substance: FLUTICASONE FUROATE\UMECLIDINIUM BROMIDE\VILANTEROL TRIFENATATE
  26. CETIRIZINE HYDROCHLORIDE [Concomitant]
     Active Substance: CETIRIZINE HYDROCHLORIDE

REACTIONS (9)
  - Dyspnoea [Not Recovered/Not Resolved]
  - Depression [Not Recovered/Not Resolved]
  - Fatigue [Not Recovered/Not Resolved]
  - Asthenia [Not Recovered/Not Resolved]
  - Middle insomnia [Not Recovered/Not Resolved]
  - Increased appetite [Not Recovered/Not Resolved]
  - Fungal infection [Not Recovered/Not Resolved]
  - Psychiatric symptom [Not Recovered/Not Resolved]
  - Product preparation error [Unknown]
